FAERS Safety Report 18583199 (Version 1)
Quarter: 2020Q4

REPORT INFORMATION
  Report Type: Other
  Country: US (occurrence: US)
  Receive Date: 20201206
  Receipt Date: 20201206
  Transmission Date: 20210114
  Serious: Yes (Hospitalization, Other)
  Sender: FDA-Public Use
  Company Number: US-SERVIER-S20012235

PATIENT

DRUGS (5)
  1. TN UNSPECIFIED [Concomitant]
     Indication: ANGIOCENTRIC LYMPHOMA
     Dosage: UNK, DAYS 1, 3, 5, AND 8
     Route: 065
  2. ONCASPAR [Suspect]
     Active Substance: PEGASPARGASE
     Indication: ANGIOCENTRIC LYMPHOMA
     Dosage: UNK, CYCLE 2, DAY 5
     Route: 065
  3. TN UNSPECIFIED [Concomitant]
     Indication: ANGIOCENTRIC LYMPHOMA
     Dosage: UNK, DAYS 1, 3, 5, AND 8
     Route: 065
  4. TN UNSPECIFIED [Concomitant]
     Indication: ARRHYTHMIA PROPHYLAXIS
     Dosage: UNK
     Route: 065
  5. ONCASPAR [Suspect]
     Active Substance: PEGASPARGASE
     Indication: OFF LABEL USE

REACTIONS (1)
  - Acute hepatic failure [Recovered/Resolved]

NARRATIVE: CASE EVENT DATE: 2020
